FAERS Safety Report 4931440-X (Version None)
Quarter: 2006Q1

REPORT INFORMATION
  Report Type: 
  Country: None (occurrence: None)
  Receive Date: 20060228
  Receipt Date: 20060214
  Transmission Date: 20060701
  Serious: Yes (Hospitalization)
  Sender: FDA-Public Use
  Company Number: 2006SP000775

PATIENT
  Age: 36 Year
  Sex: Female
  Weight: 68.0396 kg

DRUGS (6)
  1. XOPENEX [Suspect]
     Indication: RESPIRATORY DISORDER
     Dosage: 1.25 + 0.63 MG/3ML;TI; INHALATION
     Route: 055
     Dates: start: 20060101, end: 20060208
  2. XOPENEX [Suspect]
     Indication: RESPIRATORY DISORDER
     Dosage: 1.25 + 0.63 MG/3ML;TI; INHALATION
     Route: 055
     Dates: start: 20060208, end: 20060213
  3. PROTONIX ^WYETHY-AYERST^ [Concomitant]
  4. BENZONATATE [Concomitant]
  5. ZITHROMAX [Concomitant]
  6. DUONEB [Concomitant]

REACTIONS (7)
  - CHEST PAIN [None]
  - CONDITION AGGRAVATED [None]
  - DRUG INEFFECTIVE [None]
  - HEART RATE INCREASED [None]
  - MIGRAINE [None]
  - PNEUMONIA [None]
  - TREMOR [None]
